FAERS Safety Report 6453714-6 (Version None)
Quarter: 2009Q4

REPORT INFORMATION
  Report Type: 
  Country: None (occurrence: None)
  Receive Date: 20091124
  Receipt Date: 20091117
  Transmission Date: 20100525
  Serious: Yes (Other)
  Sender: FDA-Public Use
  Company Number: US-GENENTECH-294710

PATIENT
  Age: 66 Year
  Sex: Female

DRUGS (2)
  1. BEVACIZUMAB [Suspect]
     Indication: MACULAR DEGENERATION
     Dosage: 1.25 MG, 1/MONTH
     Route: 031
  2. BEVACIZUMAB [Suspect]
     Indication: CHOROIDAL NEOVASCULARISATION

REACTIONS (1)
  - EYE PAIN [None]
